FAERS Safety Report 9323926 (Version 1)
Quarter: 2013Q2

REPORT INFORMATION
  Report Type: Spontaneous
  Country: FR (occurrence: FR)
  Receive Date: 20130603
  Receipt Date: 20130603
  Transmission Date: 20140414
  Serious: Yes (Hospitalization)
  Sender: FDA-Public Use
  Company Number: FR-BRISTOL-MYERS SQUIBB COMPANY-18955922

PATIENT
  Age: 67 Year
  Sex: Male

DRUGS (10)
  1. COUMADINE [Suspect]
     Indication: ATRIAL FIBRILLATION
     Route: 048
     Dates: end: 20130106
  2. AOTAL [Concomitant]
     Route: 048
  3. RENITEC [Concomitant]
     Dosage: 1 TABLET AT MIDDAY
     Route: 048
  4. TERALITHE [Concomitant]
     Route: 048
  5. AMLOR [Concomitant]
  6. ANAFRANIL [Concomitant]
     Dosage: 1 TABLET  IN THE MORNING
     Route: 048
  7. SERETIDE [Concomitant]
     Dosage: 1 IN THE MORNING AND 1 IN THE EVENING
  8. SPIRIVA [Concomitant]
     Dosage: 1 TABLET IN THE MORNING
  9. LASILIX [Concomitant]
     Dosage: 1 TABLET IN THE MORNING
  10. OXYGEN [Concomitant]

REACTIONS (2)
  - Muscle haemorrhage [Not Recovered/Not Resolved]
  - Fall [Not Recovered/Not Resolved]
